FAERS Safety Report 10469520 (Version 3)
Quarter: 2016Q1

REPORT INFORMATION
  Report Type: Spontaneous
  Country: BR (occurrence: BR)
  Receive Date: 20140923
  Receipt Date: 20160325
  Transmission Date: 20160525
  Serious: Yes (Hospitalization, Other)
  Sender: FDA-Public Use
  Company Number: PHHY2014BR121709

PATIENT
  Sex: Male
  Weight: 1.95 kg

DRUGS (10)
  1. ESTRADIOL. [Suspect]
     Active Substance: ESTRADIOL
     Indication: FOETAL EXPOSURE DURING PREGNANCY
     Dosage: MOTHER DOSE: 4 MG, QD
     Route: 064
  2. PROGESTERONE. [Suspect]
     Active Substance: PROGESTERONE
     Dosage: MOTHER DOSE: 600 MG, QD
     Route: 064
  3. LEUPROLIDE ACETATE. [Suspect]
     Active Substance: LEUPROLIDE ACETATE
     Indication: FOETAL EXPOSURE DURING PREGNANCY
     Dosage: MOTHER DOSE: 0.5 MG, QD
     Route: 064
  4. PROGESTERONE. [Suspect]
     Active Substance: PROGESTERONE
     Indication: FOETAL EXPOSURE DURING PREGNANCY
     Dosage: MOTHER DOSE: 200 MG, QD
     Route: 064
  5. GOSERELIN [Suspect]
     Active Substance: GOSERELIN
     Indication: FOETAL EXPOSURE DURING PREGNANCY
     Dosage: MOTHER DOSE: 10.6 MG
     Route: 064
  6. LEUPROLIDE ACETATE. [Suspect]
     Active Substance: LEUPROLIDE ACETATE
     Dosage: MOTHER DOSE: 0.25 MG, QD
     Route: 064
  7. CONJUGATED ESTROGENS [Suspect]
     Active Substance: ESTROGENS, CONJUGATED
     Indication: FOETAL EXPOSURE DURING PREGNANCY
     Dosage: MOTHER DOSE: 0.625 MG, QD SINCE 2007
     Route: 064
  8. ESTRADIOL. [Suspect]
     Active Substance: ESTRADIOL
     Dosage: MOTHER DOSE: 6 MG, QD
     Route: 064
  9. DEXAMETHASONE. [Suspect]
     Active Substance: DEXAMETHASONE
     Indication: FOETAL EXPOSURE DURING PREGNANCY
     Dosage: MOTHER DOSE: 0.5 MG, QD SINCE 2007
     Route: 064
  10. FOLLICLE STIMULATING HORMONE, RECOMBINANT [Suspect]
     Active Substance: FOLLITROPIN
     Indication: FOETAL EXPOSURE DURING PREGNANCY
     Dosage: MOTHER DOSE: 112.5 U, QD
     Route: 064

REACTIONS (3)
  - Foetal exposure during pregnancy [Unknown]
  - Foetal distress syndrome [Recovering/Resolving]
  - Premature baby [Unknown]
